FAERS Safety Report 7976700-3 (Version None)
Quarter: 2011Q4

REPORT INFORMATION
  Report Type: 
  Country: None (occurrence: None)
  Receive Date: 20111213
  Receipt Date: 20111106
  Transmission Date: 20120403
  Serious: No
  Sender: FDA-Public Use
  Company Number: US-AMGEN-USASP2011057988

PATIENT
  Age: 61 Year
  Sex: Male
  Weight: 79.365 kg

DRUGS (8)
  1. ACEBUTOLOL [Concomitant]
     Dosage: 200 MG, UNK
  2. METHYLPREDNISOLONE [Concomitant]
     Dosage: 4 MG, UNK
  3. NAPROXEN (ALEVE) [Concomitant]
     Dosage: 220 MG, UNK
  4. TRAMADOL HCL [Concomitant]
     Dosage: 50 MG, UNK
  5. HYDROCHLOROTH [Concomitant]
     Dosage: 12.5 MG, UNK
  6. GABAPENTIN [Concomitant]
     Dosage: 300 MG, UNK
  7. SIMVASTATIN [Concomitant]
     Dosage: 40 MG, UNK
  8. ENBREL [Suspect]
     Indication: RHEUMATOID ARTHRITIS
     Dosage: 50 MG, QWK
     Route: 058
     Dates: start: 20111020

REACTIONS (3)
  - PRURITUS [None]
  - LIP DRY [None]
  - RASH ERYTHEMATOUS [None]
